FAERS Safety Report 6233189-2 (Version None)
Quarter: 2009Q2

REPORT INFORMATION
  Report Type: 
  Country: None (occurrence: None)
  Receive Date: 20090617
  Receipt Date: 20090609
  Transmission Date: 20091009
  Serious: Yes (Death)
  Sender: FDA-Public Use
  Company Number: US-BAYER-US-2007-006379

PATIENT
  Age: 77 Year
  Sex: Female
  Weight: 85 kg

DRUGS (27)
  1. MAGNEVIST [Suspect]
     Indication: NUCLEAR MAGNETIC RESONANCE IMAGING ABDOMINAL
     Dosage: TOTAL DAILY DOSE: 20 ML  UNIT DOSE: 20 ML
     Route: 042
     Dates: start: 20010203, end: 20010203
  2. MAGNEVIST [Suspect]
     Dosage: TOTAL DAILY DOSE: 60 ML  UNIT DOSE: 60 ML
     Route: 042
     Dates: start: 20021001, end: 20021001
  3. COUMADIN [Concomitant]
     Dosage: PER INR RESULTS
     Dates: start: 20021007
  4. GLIPIZIDE [Concomitant]
     Indication: DIABETES MELLITUS
     Dosage: UNK, UNK
     Dates: start: 20010301, end: 20020901
  5. LEVAQUIN [Concomitant]
     Indication: PNEUMONIA
     Dates: start: 20030101, end: 20050501
  6. BETA BLOCKING AGENTS [Concomitant]
  7. FUROSEMIDE [Concomitant]
     Dates: start: 20010201, end: 20010401
  8. FOLIC ACID [Concomitant]
  9. HYDROCODONE BITARTRATE [Concomitant]
     Indication: PAIN
     Dates: start: 20010501
  10. HYDRALAZINE HCL [Concomitant]
     Indication: HYPERTENSION
     Dates: start: 20010201, end: 20010501
  11. HYZAAR [Concomitant]
     Indication: HYPERTENSION
     Dates: start: 20000201, end: 20001001
  12. ISOSORBIDE [Concomitant]
     Dates: start: 20010201
  13. LIPITOR [Concomitant]
     Indication: BLOOD CHOLESTEROL INCREASED
     Dates: start: 20010201, end: 20010501
  14. METOPROLOL SUCCINATE [Concomitant]
     Indication: HYPERTENSION
     Dates: start: 19990101, end: 20050601
  15. MIDODRINE [Concomitant]
     Indication: HYPOTENSION
  16. OXYCODONE HCL AND ACETAMINOPHEN [Concomitant]
     Indication: PAIN
  17. PROCRIT [Concomitant]
  18. RENAPHRO [Concomitant]
  19. WARFARIN SODIUM [Concomitant]
     Dates: start: 20010201, end: 20050301
  20. ZAROXOLYN [Concomitant]
     Indication: HYPERTENSION
     Dates: start: 20010301, end: 20010401
  21. ZESTRIL [Concomitant]
     Indication: HYPERTENSION
     Dates: start: 20010301
  22. DISOPYRAMIDE [Concomitant]
     Indication: ARRHYTHMIA
     Dates: start: 19990101, end: 19991001
  23. ERYTHROMYCIN [Concomitant]
     Dates: start: 20040701, end: 20050701
  24. TRIMOX [Concomitant]
     Indication: ANTIBIOTIC THERAPY
     Dates: start: 20010901, end: 20040101
  25. ZAROXDYN [Concomitant]
     Indication: HYPERTENSION
     Dates: start: 20010301, end: 20010401
  26. ZITHROMAX [Concomitant]
     Indication: ANTIBIOTIC THERAPY
     Dates: start: 20010801, end: 20050101
  27. OXILAN-300 [Concomitant]
     Indication: DRUG USE FOR UNKNOWN INDICATION

REACTIONS (24)
  - ANHEDONIA [None]
  - ANXIETY [None]
  - AXONAL NEUROPATHY [None]
  - CONJUNCTIVAL HYPERAEMIA [None]
  - DYSSTASIA [None]
  - EMOTIONAL DISTRESS [None]
  - FIBROSIS [None]
  - GENERAL PHYSICAL HEALTH DETERIORATION [None]
  - JOINT CONTRACTURE [None]
  - JOINT RANGE OF MOTION DECREASED [None]
  - MOBILITY DECREASED [None]
  - MUSCLE ATROPHY [None]
  - MUSCLE TIGHTNESS [None]
  - MUSCULOSKELETAL DISCOMFORT [None]
  - NEPHROGENIC SYSTEMIC FIBROSIS [None]
  - PAIN [None]
  - PAIN IN EXTREMITY [None]
  - SCLERAL DISCOLOURATION [None]
  - SENSORY LOSS [None]
  - SKIN FIBROSIS [None]
  - SKIN HYPERPIGMENTATION [None]
  - SKIN HYPERTROPHY [None]
  - SKIN INDURATION [None]
  - SUBCUTANEOUS NODULE [None]
